FAERS Safety Report 21242374 (Version 1)
Quarter: 2022Q3

REPORT INFORMATION
  Report Type: Report from Study
  Country: IN (occurrence: IN)
  Receive Date: 20220823
  Receipt Date: 20220823
  Transmission Date: 20221026
  Serious: Yes (Death)
  Sender: FDA-Public Use
  Company Number: IN-NOVARTISPH-NVSC2022IN187794

PATIENT
  Age: 71 Year
  Sex: Female

DRUGS (1)
  1. SACUBITRIL\VALSARTAN [Suspect]
     Active Substance: SACUBITRIL\VALSARTAN
     Indication: Coronary artery disease
     Dosage: 50 MG, BID
     Route: 048
     Dates: start: 20220329

REACTIONS (3)
  - Myocardial infarction [Fatal]
  - Coronary artery disease [Fatal]
  - Product use in unapproved indication [Unknown]
